FAERS Safety Report 13194650 (Version 5)
Quarter: 2017Q2

REPORT INFORMATION
  Report Type: Report from Study
  Country: US (occurrence: US)
  Receive Date: 20170207
  Receipt Date: 20170426
  Transmission Date: 20170830
  Serious: Yes (Death, Hospitalization)
  Sender: FDA-Public Use
  Company Number: US-ROCHE-1890197

PATIENT
  Age: 68 Year
  Sex: Female
  Weight: 66.7 kg

DRUGS (23)
  1. HYDROCODONE TARTRATE/PARACETAMOL [Concomitant]
     Indication: GROIN PAIN
     Dosage: 10/325 MG
     Route: 048
     Dates: start: 20170103
  2. LEVOTHYROXINE SODIUM. [Concomitant]
     Active Substance: LEVOTHYROXINE SODIUM
     Route: 048
     Dates: start: 20170127
  3. COLACE [Concomitant]
     Active Substance: DOCUSATE SODIUM
     Indication: CONSTIPATION PROPHYLAXIS
     Route: 048
     Dates: start: 19800101
  4. DURAGESIC [Concomitant]
     Active Substance: FENTANYL
     Indication: GROIN PAIN
     Route: 061
     Dates: start: 20170104
  5. HYDROCODONE TARTRATE/PARACETAMOL [Concomitant]
     Indication: PAIN IN EXTREMITY
  6. LEVOTHYROXINE SODIUM. [Concomitant]
     Active Substance: LEVOTHYROXINE SODIUM
     Indication: HYPOTHYROIDISM
     Route: 048
     Dates: start: 20170126
  7. LEVOTHYROXINE SODIUM. [Concomitant]
     Active Substance: LEVOTHYROXINE SODIUM
     Route: 048
     Dates: start: 2002, end: 20170126
  8. DURAGESIC [Concomitant]
     Active Substance: FENTANYL
     Indication: PAIN IN EXTREMITY
  9. ATEZOLIZUMAB [Suspect]
     Active Substance: ATEZOLIZUMAB
     Indication: NEOPLASM
     Dosage: MOST RECENT DOSE PRIOR TO THE EVENTS ADMINISTERED ON 26/JAN/2017
     Route: 042
     Dates: start: 20170126, end: 20170126
  10. LEXAPRO [Concomitant]
     Active Substance: ESCITALOPRAM OXALATE
     Indication: DEPRESSION
     Route: 048
     Dates: start: 20160617
  11. DILAUDID [Concomitant]
     Active Substance: HYDROMORPHONE HYDROCHLORIDE
     Indication: GROIN PAIN
     Route: 048
     Dates: start: 20170125
  12. DILAUDID [Concomitant]
     Active Substance: HYDROMORPHONE HYDROCHLORIDE
     Indication: BACK PAIN
  13. DILAUDID [Concomitant]
     Active Substance: HYDROMORPHONE HYDROCHLORIDE
     Indication: PAIN IN EXTREMITY
  14. GDC-0919 (IDO1 INHIBITOR) [Suspect]
     Active Substance: INVESTIGATIONAL PRODUCT
     Indication: NEOPLASM
     Dosage: MOST RECENT DOSE (1000 MG) PRIOR TO THE EVENTS ADMINISTERED ON 31/JAN/2017
     Route: 048
     Dates: start: 20170125, end: 20170131
  15. PROCHLORPERAZINE MALEATE. [Concomitant]
     Active Substance: PROCHLORPERAZINE MALEATE
     Indication: NAUSEA
     Route: 048
     Dates: start: 20150612
  16. DEXAMETHASONE. [Concomitant]
     Active Substance: DEXAMETHASONE
  17. DURAGESIC [Concomitant]
     Active Substance: FENTANYL
     Indication: BACK PAIN
     Route: 061
     Dates: start: 20170104, end: 20170125
  18. HYDROCODONE TARTRATE/PARACETAMOL [Concomitant]
     Indication: BACK PAIN
  19. SODIUM CHLORIDE. [Concomitant]
     Active Substance: SODIUM CHLORIDE
     Indication: INFUSION RELATED REACTION
     Route: 042
     Dates: start: 20170126, end: 20170126
  20. ATIVAN [Concomitant]
     Active Substance: LORAZEPAM
     Indication: ANXIETY
     Route: 048
     Dates: start: 20161016
  21. LOVENOX [Concomitant]
     Active Substance: ENOXAPARIN SODIUM
     Indication: THROMBOSIS
     Route: 058
     Dates: start: 20160824
  22. HYDROCORTISONE. [Concomitant]
     Active Substance: HYDROCORTISONE
  23. ZOLPIDEM TARTRATE. [Concomitant]
     Active Substance: ZOLPIDEM TARTRATE
     Indication: INSOMNIA
     Route: 048
     Dates: start: 2002

REACTIONS (3)
  - Thrombocytopenia [Recovered/Resolved with Sequelae]
  - Malignant neoplasm progression [Fatal]
  - Pneumonia [Recovered/Resolved]

NARRATIVE: CASE EVENT DATE: 20170204
